FAERS Safety Report 8614657-2 (Version None)
Quarter: 2012Q3

REPORT INFORMATION
  Report Type: 
  Country: None (occurrence: None)
  Receive Date: 20120823
  Receipt Date: 20120817
  Transmission Date: 20120928
  Serious: No
  Sender: FDA-Public Use
  Company Number: US-TEVA-354722USA

PATIENT
  Sex: Male

DRUGS (1)
  1. NUVIGIL [Suspect]
     Indication: NARCOLEPSY
     Route: 048
     Dates: start: 20120501

REACTIONS (4)
  - HALLUCINATION [None]
  - DRUG INEFFECTIVE [None]
  - PANIC ATTACK [None]
  - ABNORMAL DREAMS [None]
